FAERS Safety Report 13163295 (Version 1)
Quarter: 2017Q1

REPORT INFORMATION
  Report Type: Spontaneous
  Country: CH (occurrence: CH)
  Receive Date: 20170130
  Receipt Date: 20170130
  Transmission Date: 20170428
  Serious: Yes (Other)
  Sender: FDA-Public Use
  Company Number: CH-JNJFOC-20161012461

PATIENT
  Sex: Male
  Weight: 3.64 kg

DRUGS (2)
  1. ITRACONAZOLE. [Suspect]
     Active Substance: ITRACONAZOLE
     Indication: ONYCHOMYCOSIS
     Route: 064
     Dates: start: 20150804, end: 201510
  2. LOCERYL [Suspect]
     Active Substance: AMOROLFINE HYDROCHLORIDE
     Indication: ONYCHOMYCOSIS
     Route: 064
     Dates: start: 20150804, end: 201510

REACTIONS (3)
  - Ultrasound foetal abnormal [Recovered/Resolved]
  - Foetal exposure during pregnancy [Unknown]
  - Foetal renal imaging abnormal [Recovered/Resolved]

NARRATIVE: CASE EVENT DATE: 2015
